FAERS Safety Report 9381562 (Version 2)
Quarter: 2013Q3

REPORT INFORMATION
  Report Type: Spontaneous
  Country: US (occurrence: US)
  Receive Date: 20130703
  Receipt Date: 20130715
  Transmission Date: 20140515
  Serious: Yes (Other)
  Sender: FDA-Public Use
  Company Number: US-JNJFOC-20130618713

PATIENT
  Sex: Female

DRUGS (1)
  1. NUCYNTA [Suspect]
     Indication: OVARIAN CYST
     Route: 048
     Dates: start: 201202

REACTIONS (3)
  - Urinary tract infection [Unknown]
  - Oophorectomy [Unknown]
  - Pain [Unknown]
